FAERS Safety Report 9173569 (Version 1)
Quarter: 2013Q1

REPORT INFORMATION
  Report Type: Spontaneous
  Country: IL (occurrence: None)
  Receive Date: 20130315
  Receipt Date: 20130315
  Transmission Date: 20140127
  Serious: Yes (Other)
  Sender: FDA-Public Use
  Company Number: 2013-1017

PATIENT
  Age: 74 Year
  Sex: Male
  Weight: 87 kg

DRUGS (1)
  1. SOMATULINE AUTOGEL [Suspect]
     Indication: NEUROENDOCRINE TUMOUR
     Dosage: (90 MG, NOT REPORTED, UNKNOWN
     Dates: start: 20111115

REACTIONS (2)
  - Prostate cancer [None]
  - Diarrhoea [None]
